APPROVED DRUG PRODUCT: DOXYLAMINE SUCCINATE AND PYRIDOXINE HYDROCHLORIDE
Active Ingredient: DOXYLAMINE SUCCINATE; PYRIDOXINE HYDROCHLORIDE
Strength: 20MG;20MG
Dosage Form/Route: TABLET, EXTENDED RELEASE;ORAL
Application: A212472 | Product #001
Applicant: ACTAVIS LABORATORIES FL INC
Approved: Mar 1, 2022 | RLD: No | RS: No | Type: DISCN